FAERS Safety Report 15740233 (Version 1)
Quarter: 2018Q4

REPORT INFORMATION
  Report Type: Spontaneous
  Country: HR (occurrence: HR)
  Receive Date: 20181219
  Receipt Date: 20181219
  Transmission Date: 20190205
  Serious: Yes (Other)
  Sender: FDA-Public Use
  Company Number: HR-PFIZER INC-2018517849

PATIENT
  Age: 11 Year
  Sex: Female

DRUGS (1)
  1. XANAX [Suspect]
     Active Substance: ALPRAZOLAM
     Dosage: FEW TABLETS
     Route: 048
     Dates: start: 201807, end: 201807

REACTIONS (1)
  - Suspected suicide attempt [Unknown]

NARRATIVE: CASE EVENT DATE: 20180713
